FAERS Safety Report 22146772 (Version 1)
Quarter: 2023Q1

REPORT INFORMATION
  Report Type: Spontaneous
  Country: JP (occurrence: JP)
  Receive Date: 20230328
  Receipt Date: 20230328
  Transmission Date: 20230417
  Serious: Yes (Death, Hospitalization, Other)
  Sender: FDA-Public Use
  Company Number: JP-PFIZER INC-2015301893

PATIENT
  Age: 74 Year
  Sex: Female

DRUGS (2)
  1. METHOTREXATE SODIUM [Suspect]
     Active Substance: METHOTREXATE SODIUM
     Indication: Rheumatoid arthritis
     Dosage: 6 MG, WEEKLY
     Route: 048
     Dates: start: 2001
  2. PREDNISOLONE [Concomitant]
     Active Substance: PREDNISOLONE
     Indication: Rheumatoid arthritis
     Dosage: 2.5 MG, WEEKLY
     Route: 048

REACTIONS (2)
  - Diffuse large B-cell lymphoma [Fatal]
  - Lymphoproliferative disorder [Fatal]
